FAERS Safety Report 11529504 (Version 2)
Quarter: 2015Q3

REPORT INFORMATION
  Report Type: Spontaneous
  Country: DE (occurrence: DE)
  Receive Date: 20150921
  Receipt Date: 20150929
  Transmission Date: 20151125
  Serious: Yes (Life-Threatening, Hospitalization)
  Sender: FDA-Public Use
  Company Number: DE-SA-2015SA143167

PATIENT
  Age: 19 Year
  Sex: Female
  Weight: 54 kg

DRUGS (2)
  1. DIPHENHYDRAMINE HYDROCHLORIDE. [Suspect]
     Active Substance: DIPHENHYDRAMINE HYDROCHLORIDE
     Indication: SUICIDE ATTEMPT
     Dosage: 10 TAB OF 50 MG
     Route: 048
  2. DIPHENHYDRAMINE. [Suspect]
     Active Substance: DIPHENHYDRAMINE
     Route: 065

REACTIONS (15)
  - Heart rate increased [Recovered/Resolved]
  - Blood pH decreased [Recovered/Resolved]
  - Hypothermia [Recovered/Resolved]
  - Respiratory acidosis [Recovered/Resolved]
  - Respiratory rate decreased [Recovered/Resolved]
  - Somnolence [Recovered/Resolved]
  - Loss of consciousness [Recovered/Resolved]
  - Pupil fixed [Recovered/Resolved]
  - Overdose [Unknown]
  - Unresponsive to stimuli [Recovered/Resolved]
  - Coma scale abnormal [Recovered/Resolved]
  - Stupor [Recovered/Resolved]
  - PCO2 increased [Recovered/Resolved]
  - Oxygen saturation decreased [Recovered/Resolved]
  - Blood creatine phosphokinase increased [Recovered/Resolved]
